FAERS Safety Report 5191169-2 (Version None)
Quarter: 2006Q4

REPORT INFORMATION
  Report Type: 
  Country: None (occurrence: None)
  Receive Date: 20061226
  Receipt Date: 20061219
  Transmission Date: 20070319
  Serious: Yes (Death, Hospitalization)
  Sender: FDA-Public Use
  Company Number: FR-AVENTIS-200614500FR

PATIENT
  Age: 84 Year
  Sex: Female

DRUGS (1)
  1. KETEK [Suspect]
     Indication: BRONCHITIS
     Route: 048
     Dates: start: 20060101, end: 20060101

REACTIONS (7)
  - ANOREXIA [None]
  - ASTHENIA [None]
  - CLAVICLE FRACTURE [None]
  - HYPONATRAEMIA [None]
  - LOSS OF CONSCIOUSNESS [None]
  - PHLEBITIS [None]
  - PULMONARY EMBOLISM [None]
